FAERS Safety Report 5283632-0 (Version None)
Quarter: 2007Q1

REPORT INFORMATION
  Report Type: 
  Country: None (occurrence: None)
  Receive Date: 20070329
  Receipt Date: 20070329
  Transmission Date: 20070707
  Serious: Yes (Hospitalization, Disabling)
  Sender: FDA-Public Use
  Company Number: None

PATIENT
  Age: 83 Year
  Sex: Male

DRUGS (15)
  1. DILTIAZEM [Suspect]
     Indication: ATRIAL FIBRILLATION
     Dates: start: 20070120, end: 20070121
  2. CARVEDILOL [Suspect]
     Indication: CARDIAC FAILURE CONGESTIVE
     Dates: start: 20070120, end: 20070121
  3. ALBUTEROL [Concomitant]
  4. ASPIRIN [Concomitant]
  5. CALCIUM CARBONATE/VITAMIN D [Concomitant]
  6. CARVEDILOL TAB [Concomitant]
  7. DILTIAZEM HCL [Concomitant]
  8. DOCUSATE SODIUM [Concomitant]
  9. ENALAPRIL MALEATE [Concomitant]
  10. FLUTICASONE/SALMETEROL [Concomitant]
  11. GUAIFENESIN DM [Concomitant]
  12. LORATADINE [Concomitant]
  13. METHYLCELLULOSE [Concomitant]
  14. POTASSIUM CHLORIDE [Concomitant]
  15. TIOTROPIUM BROMIDE [Concomitant]

REACTIONS (2)
  - BRADYCARDIA [None]
  - HYPOTENSION [None]
